FAERS Safety Report 20040472 (Version 1)
Quarter: 2021Q4

REPORT INFORMATION
  Report Type: Spontaneous
  Country: US (occurrence: None)
  Receive Date: 20211106
  Receipt Date: 20211106
  Transmission Date: 20220303
  Serious: Yes (Hospitalization, Other)
  Sender: FDA-Public Use
  Company Number: None

PATIENT
  Age: 34 Year
  Sex: Female
  Weight: 79 kg

DRUGS (1)
  1. CRIZANLIZUMAB-TMCA [Suspect]
     Active Substance: CRIZANLIZUMAB-TMCA
     Indication: Sickle cell disease
     Dosage: FREQUENCY : ONCE;?
     Route: 041
     Dates: start: 20211028, end: 20211028

REACTIONS (7)
  - Sickle cell anaemia with crisis [None]
  - Infusion related reaction [None]
  - Pain [None]
  - Pain in extremity [None]
  - Pain in extremity [None]
  - Chest pain [None]
  - Back pain [None]

NARRATIVE: CASE EVENT DATE: 20211028
